FAERS Safety Report 7821808-6 (Version None)
Quarter: 2011Q4

REPORT INFORMATION
  Report Type: 
  Country: None (occurrence: None)
  Receive Date: 20111018
  Receipt Date: 20110413
  Transmission Date: 20120403
  Serious: No
  Sender: FDA-Public Use
  Company Number: US-ASTRAZENECA-2011SE14517

PATIENT
  Age: 82 Year
  Sex: Male

DRUGS (1)
  1. SYMBICORT [Suspect]
     Indication: EOSINOPHILIC PNEUMONIA
     Dosage: 160-4.5 MICROGRAMS,  2 PUFFS TWO TIMES A DAY.
     Route: 055

REACTIONS (1)
  - DYSPNOEA [None]
